FAERS Safety Report 10376800 (Version 2)
Quarter: 2014Q3

REPORT INFORMATION
  Report Type: Report from Study
  Country: US (occurrence: US)
  Receive Date: 20140811
  Receipt Date: 20140811
  Transmission Date: 20150326
  Serious: Yes (Hospitalization)
  Sender: FDA-Public Use
  Company Number: US-009507513-1406USA004746

PATIENT
  Age: 35 Year
  Sex: Male

DRUGS (8)
  1. CYCLOPHOSPHAMIDE. [Suspect]
     Active Substance: CYCLOPHOSPHAMIDE
     Dosage: 150 MG/M2, BID,OVER 3 HOURS ON DAYS 1-3
     Route: 042
  2. RITUXIMAB [Suspect]
     Active Substance: RITUXIMAB
     Dosage: 375 MG/M2,ON DAY 2 AND DAY 8(CYCLE 1 AND 3 ONLY)
     Route: 042
  3. FILGRASTIM [Suspect]
     Active Substance: FILGRASTIM
     Dosage: 5-10 MCG/KG
     Route: 058
  4. INOTUZUMAB OZOGAMICIN [Suspect]
     Active Substance: INOTUZUMAB OZOGAMICIN
     Dosage: 1.8 MG/M2, OVER 1 HOUR ON DAY 3
     Route: 042
     Dates: start: 20140313, end: 20140313
  5. DEXAMETHASONE. [Suspect]
     Active Substance: DEXAMETHASONE
     Dosage: DAILY FOR 4 DAYS ON DAYS 1-4 AND DAYS 11-14,20 MG, QD
     Route: 042
  6. VINCRISTINE [Suspect]
     Active Substance: VINCRISTINE
     Dosage: 2 MG, DAY 1 AND DAY 8
     Route: 042
  7. MESNA. [Suspect]
     Active Substance: MESNA
     Dosage: 300 MG/M2, QD OVER 24 HOURS FOR 3 DAYS 1-3
     Route: 042
  8. PEGFILGRASTIM [Suspect]
     Active Substance: PEGFILGRASTIM
     Dosage: 6 MG, UNK
     Route: 058

REACTIONS (1)
  - Pyrexia [Recovered/Resolved]

NARRATIVE: CASE EVENT DATE: 20140318
